FAERS Safety Report 4907823-0 (Version None)
Quarter: 2006Q1

REPORT INFORMATION
  Report Type: 
  Country: None (occurrence: None)
  Receive Date: 20060210
  Receipt Date: 20060131
  Transmission Date: 20060701
  Serious: Yes (Other)
  Sender: FDA-Public Use
  Company Number: TW-ABBOTT-06P-028-0323852-00

PATIENT
  Age: 3 Year
  Sex: Male
  Weight: 14 kg

DRUGS (7)
  1. SILVER SULFADIAZINE [Suspect]
     Indication: WOUND TREATMENT
     Dosage: 1%
  2. ATROPINE [Concomitant]
     Indication: ANAESTHESIA
  3. THIAMYLAL [Concomitant]
     Indication: ANAESTHESIA
  4. ATRACURIUM [Concomitant]
     Indication: ANAESTHESIA
  5. SEVOFLURANE [Concomitant]
     Indication: ANAESTHESIA
  6. OXYGEN [Concomitant]
     Indication: ANAESTHESIA
  7. PARACETAMOL [Concomitant]
     Indication: ANALGESIC EFFECT

REACTIONS (2)
  - CYANOSIS [None]
  - METHAEMOGLOBINAEMIA [None]
